FAERS Safety Report 4884698-X (Version None)
Quarter: 2005Q4

REPORT INFORMATION
  Report Type: 
  Country: None (occurrence: None)
  Receive Date: 20051201
  Receipt Date: 20050831
  Transmission Date: 20060501
  Serious: No
  Sender: FDA-Public Use
  Company Number: 2005PV001725

PATIENT
  Age: 62 Year
  Sex: Female
  Weight: 97.5234 kg

DRUGS (12)
  1. BYETTA [Suspect]
     Indication: DIABETES MELLITUS NON-INSULIN-DEPENDENT
     Dosage: 5 MCG; BID; SC
     Route: 058
     Dates: start: 20050810
  2. METFORMIN HCL [Concomitant]
  3. AVANDIA [Concomitant]
  4. ALLEGRA [Concomitant]
  5. CRESTOR [Concomitant]
  6. QUINAPRIL [Concomitant]
  7. COREG [Concomitant]
  8. SYNTHROID [Concomitant]
  9. ESTRATEST [Concomitant]
  10. HYDROCHLOROTHIAZIDE [Concomitant]
  11. MULTIVITAMIN [Concomitant]
  12. ASPIRIN [Concomitant]

REACTIONS (1)
  - THROAT TIGHTNESS [None]
